FAERS Safety Report 17191995 (Version 1)
Quarter: 2019Q4

REPORT INFORMATION
  Report Type: Report from Study
  Country: None (occurrence: IE)
  Receive Date: 20191223
  Receipt Date: 20191223
  Transmission Date: 20200122
  Serious: Yes (Hospitalization)
  Sender: FDA-Public Use
  Company Number: IE-ABBVIE-19K-229-3200959-00

PATIENT
  Age: 1 Year
  Sex: Female

DRUGS (7)
  1. SYNAGIS [Suspect]
     Active Substance: PALIVIZUMAB
     Dosage: SECOND SEASON
     Route: 030
     Dates: start: 20191115, end: 20191115
  2. VITAMIN D [Concomitant]
     Active Substance: VITAMIN D NOS
     Indication: PRODUCT USED FOR UNKNOWN INDICATION
     Route: 050
  3. SYNAGIS [Suspect]
     Active Substance: PALIVIZUMAB
     Dosage: FIRST SEASON
     Route: 030
     Dates: start: 20190117, end: 20190117
  4. SYNAGIS [Suspect]
     Active Substance: PALIVIZUMAB
     Indication: PREMATURE BABY
     Dosage: FIRST SEASON
     Route: 030
     Dates: start: 20181220, end: 20181220
  5. SYNAGIS [Suspect]
     Active Substance: PALIVIZUMAB
     Dosage: SECOND SEASON
     Route: 030
     Dates: start: 20191017, end: 20191017
  6. SYNAGIS [Suspect]
     Active Substance: PALIVIZUMAB
     Dosage: FIRST SEASON
     Route: 030
     Dates: start: 20190220, end: 20190220
  7. LOSEC [Concomitant]
     Active Substance: OMEPRAZOLE
     Indication: PRODUCT USED FOR UNKNOWN INDICATION
     Route: 050

REACTIONS (1)
  - Respiratory syncytial virus infection [Not Recovered/Not Resolved]

NARRATIVE: CASE EVENT DATE: 20191214
